FAERS Safety Report 7360721-8 (Version None)
Quarter: 2011Q1

REPORT INFORMATION
  Report Type: 
  Country: None (occurrence: None)
  Receive Date: 20110318
  Receipt Date: 20110311
  Transmission Date: 20110831
  Serious: Yes (Hospitalization, Other)
  Sender: FDA-Public Use
  Company Number: US-PFIZER INC-2006031815

PATIENT
  Sex: Male
  Weight: 95 kg

DRUGS (2)
  1. NEURONTIN [Suspect]
     Indication: ILL-DEFINED DISORDER
     Dosage: 800 MG, AT BEDTIME THROUGH
     Route: 048
     Dates: start: 20020301, end: 20020401
  2. VIOXX [Concomitant]
     Route: 065

REACTIONS (7)
  - ALCOHOL ABUSE [None]
  - DRUG SCREEN POSITIVE [None]
  - HAEMOTHORAX [None]
  - CARDIOMEGALY [None]
  - MAJOR DEPRESSION [None]
  - SUICIDE ATTEMPT [None]
  - OVERDOSE [None]
